FAERS Safety Report 19441133 (Version 1)
Quarter: 2021Q2

REPORT INFORMATION
  Report Type: Spontaneous
  Country: US (occurrence: US)
  Receive Date: 20210617
  Receipt Date: 20210617
  Transmission Date: 20210717
  Serious: Yes (Other)
  Sender: FDA-Public Use
  Company Number: None

PATIENT
  Age: 43 Year
  Sex: Female

DRUGS (13)
  1. RINVOQ [Suspect]
     Active Substance: UPADACITINIB
     Indication: RHEUMATOID ARTHRITIS
     Route: 048
     Dates: start: 20210611
  2. VITAMIN D [Concomitant]
     Active Substance: VITAMIN D NOS
  3. POTASSIUM [Concomitant]
     Active Substance: POTASSIUM
  4. FOLIC ACID. [Concomitant]
     Active Substance: FOLIC ACID
  5. TRAZODONE [Concomitant]
     Active Substance: TRAZODONE HYDROCHLORIDE
  6. SYNTHROID [Concomitant]
     Active Substance: LEVOTHYROXINE SODIUM
  7. OTEZLA [Concomitant]
     Active Substance: APREMILAST
  8. PREDNISONE. [Concomitant]
     Active Substance: PREDNISONE
  9. ALLEGRA [Concomitant]
     Active Substance: FEXOFENADINE HYDROCHLORIDE
  10. SERTRALINE [Concomitant]
     Active Substance: SERTRALINE HYDROCHLORIDE
  11. TRAMADOL. [Concomitant]
     Active Substance: TRAMADOL
  12. METHOTREXATE. [Concomitant]
     Active Substance: METHOTREXATE
  13. ELETRIPTAN. [Concomitant]
     Active Substance: ELETRIPTAN

REACTIONS (1)
  - Rash erythematous [None]

NARRATIVE: CASE EVENT DATE: 20210613
